FAERS Safety Report 6103380-4 (Version None)
Quarter: 2009Q1

REPORT INFORMATION
  Report Type: 
  Country: None (occurrence: None)
  Receive Date: 20090305
  Receipt Date: 20090129
  Transmission Date: 20090719
  Serious: No
  Sender: FDA-Public Use
  Company Number: US-BAYER-200912399NA

PATIENT
  Age: 46 Year
  Sex: Male

DRUGS (4)
  1. ULTRAVIST-370 PHARAMCY BULK PACKAGE [Suspect]
     Indication: COMPUTERISED TOMOGRAM ABDOMEN
     Dosage: TOTAL DAILY DOSE: 120 ML  UNIT DOSE: 500 ML
     Route: 042
     Dates: start: 20090129, end: 20090129
  2. ULTRAVIST-370 PHARAMCY BULK PACKAGE [Suspect]
     Route: 048
     Dates: start: 20090129, end: 20090129
  3. NEXIUM [Concomitant]
  4. GAMMAGARD [Concomitant]

REACTIONS (2)
  - ERYTHEMA [None]
  - PRURITUS [None]
